FAERS Safety Report 15967298 (Version 1)
Quarter: 2019Q1

REPORT INFORMATION
  Report Type: Spontaneous
  Country: US (occurrence: US)
  Receive Date: 20190215
  Receipt Date: 20190215
  Transmission Date: 20190418
  Serious: No
  Sender: FDA-Public Use
  Company Number: US-SA-2019SA041492

PATIENT

DRUGS (2)
  1. AMLODIPINE [Suspect]
     Active Substance: AMLODIPINE BESYLATE
  2. AMBIEN [Suspect]
     Active Substance: ZOLPIDEM TARTRATE

REACTIONS (2)
  - Somnambulism [Unknown]
  - Swelling [Unknown]
